FAERS Safety Report 5179594-7 (Version None)
Quarter: 2006Q4

REPORT INFORMATION
  Report Type: 
  Country: None (occurrence: None)
  Receive Date: 20061211
  Receipt Date: 20061127
  Transmission Date: 20070319
  Serious: Yes (Other)
  Sender: FDA-Public Use
  Company Number: 2006145678

PATIENT
  Age: 39 Year
  Sex: Female

DRUGS (1)
  1. GEODON [Suspect]
     Indication: POST-TRAUMATIC STRESS DISORDER
     Dosage: 160 MG (80 MG, 2 IN 1 D)
     Dates: start: 20010101

REACTIONS (7)
  - AFFECTIVE DISORDER [None]
  - ATTENTION DEFICIT/HYPERACTIVITY DISORDER [None]
  - BLOOD PROLACTIN INCREASED [None]
  - DEPRESSION [None]
  - DISCOMFORT [None]
  - DRUG DEPENDENCE [None]
  - DRUG WITHDRAWAL SYNDROME [None]
